FAERS Safety Report 22661777 (Version 1)
Quarter: 2023Q2

REPORT INFORMATION
  Report Type: Spontaneous
  Country: JP (occurrence: None)
  Receive Date: 20230630
  Receipt Date: 20230630
  Transmission Date: 20230722
  Serious: Yes (Other)
  Sender: FDA-Public Use
  Company Number: 2023A147790

PATIENT
  Age: 76 Year
  Sex: Female

DRUGS (2)
  1. GEFITINIB [Suspect]
     Active Substance: GEFITINIB
     Indication: Non-small cell lung cancer stage IIIB
     Route: 048
  2. GEFITINIB [Suspect]
     Active Substance: GEFITINIB
     Indication: Metastases to lung
     Route: 048

REACTIONS (3)
  - Malignant transformation [Unknown]
  - Malignant neoplasm progression [Unknown]
  - Drug resistance [Unknown]
